FAERS Safety Report 5940882-5 (Version None)
Quarter: 2008Q4

REPORT INFORMATION
  Report Type: 
  Country: None (occurrence: None)
  Receive Date: 20081104
  Receipt Date: 20081027
  Transmission Date: 20090506
  Serious: Yes (Other)
  Sender: FDA-Public Use
  Company Number: US-JNJCH-2008053118

PATIENT
  Age: 37 Year
  Sex: Male
  Weight: 83.9 kg

DRUGS (1)
  1. LISTERINE WHITENING PRE-BRUSH RINSE [Suspect]
     Indication: DENTAL DISORDER PROPHYLAXIS
     Dosage: TEXT:15 ML ONCE
     Route: 048
     Dates: start: 20081025, end: 20081025

REACTIONS (2)
  - DYSPNOEA [None]
  - THROAT TIGHTNESS [None]
